FAERS Safety Report 23461966 (Version 2)
Quarter: 2024Q2

REPORT INFORMATION
  Report Type: Spontaneous
  Country: US (occurrence: US)
  Receive Date: 20240131
  Receipt Date: 20240606
  Transmission Date: 20240715
  Serious: Yes (Other)
  Sender: FDA-Public Use
  Company Number: US-FMCRTG-FMC-2401-000053

PATIENT
  Age: 86 Year
  Sex: Male
  Weight: 71 kg

DRUGS (2)
  1. DELFLEX WITH DEXTROSE 1.5% LOW MAGNESIUM LOW CALCIUM [Suspect]
     Active Substance: CALCIUM CHLORIDE\DEXTROSE\MAGNESIUM CHLORIDE\SODIUM CHLORIDE\SODIUM LACTATE
     Indication: End stage renal disease
     Dosage: 2200 ML FOR 4 CYCLES WITH NO LAST FILL AND NO DAYTIME EXCHANGE
     Route: 033
  2. DELFLEX WITH DEXTROSE 2.5% LOW MAGNESIUM LOW CALCIUM [Suspect]
     Active Substance: CALCIUM CHLORIDE\DEXTROSE\MAGNESIUM CHLORIDE\SODIUM CHLORIDE\SODIUM LACTATE
     Indication: End stage renal disease
     Dosage: 2200 ML FOR 4 CYCLES WITH NO LAST FILL AND NO DAYTIME EXCHANGE
     Route: 033

REACTIONS (2)
  - Peritonitis [Recovered/Resolved]
  - Bloody peritoneal effluent [Unknown]

NARRATIVE: CASE EVENT DATE: 20240107
